FAERS Safety Report 9013042 (Version 3)
Quarter: 2013Q1

REPORT INFORMATION
  Report Type: Spontaneous
  Country: US (occurrence: US)
  Receive Date: 20130114
  Receipt Date: 20130225
  Transmission Date: 20140127
  Serious: No
  Sender: FDA-Public Use
  Company Number: US-PFIZER INC-2013010447

PATIENT
  Age: 77 Year
  Sex: Female
  Weight: 80 kg

DRUGS (10)
  1. PREMARIN [Suspect]
     Dosage: UNK, INSERT 0.5 GM PER VADGINA BEFORE BED TWICE A WEEK
     Route: 067
     Dates: start: 20121217, end: 2013
  2. ASPIRIN [Concomitant]
     Dosage: UNK, 1X/DAY
  3. NEXIUM [Concomitant]
     Dosage: 20 MG, UNK
  4. NEURONTIN [Concomitant]
     Dosage: 300 MG, 3X/DAY
  5. HYDROCODONE [Concomitant]
     Dosage: UNK
  6. SYNTHROID [Concomitant]
     Indication: HYPOTHYROIDISM
     Dosage: 88 UG, UNK
  7. MEVACOR [Concomitant]
     Dosage: UNK
  8. ANTIVERT [Concomitant]
     Dosage: UNK
  9. PROCARDIA [Concomitant]
     Dosage: 60 MG, UNK
  10. VITAMIN D3 [Concomitant]
     Dosage: UNK

REACTIONS (11)
  - Visual impairment [Unknown]
  - Heart rate increased [Unknown]
  - Activities of daily living impaired [Unknown]
  - Malaise [Unknown]
  - Asthenia [Unknown]
  - Nervousness [Unknown]
  - Thinking abnormal [Unknown]
  - Gait disturbance [Unknown]
  - Pain [Unknown]
  - Arthralgia [Unknown]
  - Headache [Unknown]
